FAERS Safety Report 11356267 (Version 1)
Quarter: 2015Q3

REPORT INFORMATION
  Report Type: Spontaneous
  Country: US (occurrence: US)
  Receive Date: 20150807
  Receipt Date: 20150807
  Transmission Date: 20151125
  Serious: No
  Sender: FDA-Public Use
  Company Number: US-PFIZER INC-2015261119

PATIENT
  Age: 58 Year
  Sex: Female

DRUGS (7)
  1. LYRICA [Suspect]
     Active Substance: PREGABALIN
     Indication: PAIN
     Dosage: UNK
  2. CYMBALTA [Concomitant]
     Active Substance: DULOXETINE HYDROCHLORIDE
     Dosage: UNK
  3. LISINOPRIL. [Concomitant]
     Active Substance: LISINOPRIL
     Indication: HYPERTENSION
  4. PLAQUENIL [Concomitant]
     Active Substance: HYDROXYCHLOROQUINE SULFATE
     Dosage: UNK
  5. NORCO [Concomitant]
     Active Substance: ACETAMINOPHEN\HYDROCODONE BITARTRATE
     Dosage: UNK
  6. LEVOTHYROXINE. [Concomitant]
     Active Substance: LEVOTHYROXINE
     Indication: THYROID DISORDER
  7. METHOCARBAMOL. [Concomitant]
     Active Substance: METHOCARBAMOL
     Indication: MUSCLE RELAXANT THERAPY
     Dosage: UNK

REACTIONS (2)
  - Drug ineffective [Unknown]
  - Insomnia [Unknown]
